FAERS Safety Report 10654489 (Version 2)
Quarter: 2014Q4

REPORT INFORMATION
  Report Type: Report from Study
  Country: US (occurrence: US)
  Receive Date: 20141216
  Receipt Date: 20141216
  Transmission Date: 20150529
  Serious: Yes (Hospitalization)
  Sender: FDA-Public Use
  Company Number: US-SA-2014SA158963

PATIENT
  Age: 78 Year
  Sex: Female

DRUGS (1)
  1. AUBAGIO [Suspect]
     Active Substance: TERIFLUNOMIDE
     Indication: MULTIPLE SCLEROSIS
     Route: 048
     Dates: start: 20131111

REACTIONS (5)
  - Neck pain [Unknown]
  - Hypoaesthesia eye [Unknown]
  - Vision blurred [Unknown]
  - Headache [Unknown]
  - Myelitis [Unknown]
